FAERS Safety Report 13891700 (Version 1)
Quarter: 2017Q3

REPORT INFORMATION
  Report Type: Spontaneous
  Country: JP (occurrence: JP)
  Receive Date: 20170822
  Receipt Date: 20170822
  Transmission Date: 20171127
  Serious: Yes (Death, Hospitalization, Other)
  Sender: FDA-Public Use
  Company Number: JP-MYLANLABS-2017M1051612

PATIENT

DRUGS (5)
  1. VINCRISTINE [Suspect]
     Active Substance: VINCRISTINE
     Indication: NEOPLASM
     Dosage: CHOP REGIMEN
     Route: 065
  2. PREDNISOLONE. [Suspect]
     Active Substance: PREDNISOLONE
     Indication: NEOPLASM
     Dosage: CHOP REGIMEN
     Route: 065
  3. ETOPOSIDE. [Suspect]
     Active Substance: ETOPOSIDE
     Indication: NEOPLASM
     Dosage: CHOP REGIMEN
     Route: 065
  4. PIRARUBICIN [Suspect]
     Active Substance: PIRARUBICIN
     Indication: NEOPLASM
     Dosage: CHOP REGIMEN
     Route: 065
  5. CYCLOPHOSPHAMIDE. [Suspect]
     Active Substance: CYCLOPHOSPHAMIDE
     Indication: NEOPLASM
     Dosage: CHOP REGIMEN
     Route: 065

REACTIONS (6)
  - Neutropenic sepsis [Unknown]
  - Renal salt-wasting syndrome [Unknown]
  - Hypovolaemic shock [Unknown]
  - Haemorrhage [Fatal]
  - Renal tubular disorder [Fatal]
  - Cerebral salt-wasting syndrome [Unknown]
